FAERS Safety Report 13448469 (Version 1)
Quarter: 2017Q2

REPORT INFORMATION
  Report Type: Spontaneous
  Country: ES (occurrence: ES)
  Receive Date: 20170417
  Receipt Date: 20170417
  Transmission Date: 20170830
  Serious: Yes (Other)
  Sender: FDA-Public Use
  Company Number: ES-JNJFOC-20170415323

PATIENT
  Age: 87 Year
  Sex: Male

DRUGS (1)
  1. ZALDIAR [Suspect]
     Active Substance: ACETAMINOPHEN\TRAMADOL HYDROCHLORIDE
     Indication: ARTHRALGIA
     Route: 048
     Dates: start: 20170324

REACTIONS (2)
  - Hallucination, visual [Recovering/Resolving]
  - Abnormal behaviour [Recovering/Resolving]

NARRATIVE: CASE EVENT DATE: 20170324
